FAERS Safety Report 4351291-7 (Version None)
Quarter: 2004Q2

REPORT INFORMATION
  Report Type: 
  Country: None (occurrence: None)
  Receive Date: 20040430
  Receipt Date: 20040430
  Transmission Date: 20050107
  Serious: Yes (Hospitalization)
  Sender: FDA-Public Use
  Company Number: None

PATIENT
  Sex: Male
  Weight: 88.7236 kg

DRUGS (12)
  1. DOCETAXEL 80MG/ML AVENTIS [Suspect]
     Indication: PANCREATIC CARCINOMA
     Dosage: 65MG/M2 Q 21 DAYS INTRAVENOUS
     Route: 042
     Dates: start: 20040421, end: 20040421
  2. IRINOTECAN 100MG/5ML PHARMACIA AND UPJOHN [Suspect]
     Indication: PANCREATIC CARCINOMA
     Dosage: 160MG/M2 Q 21 DAYS INTRAVENOUS
     Route: 042
     Dates: start: 20040421, end: 20040421
  3. KLOR-CON [Concomitant]
  4. TRIAMETEREN HCTZ [Concomitant]
  5. MONOXIDIL [Concomitant]
  6. TERAZOSIN HCL [Concomitant]
  7. GLIPIZIDE [Concomitant]
  8. DIOVAN [Concomitant]
  9. PANCREATIC ENZYMES [Concomitant]
  10. REGLAN [Concomitant]
  11. ATIVAN [Concomitant]
  12. PHENERGAN [Concomitant]

REACTIONS (2)
  - HYPOTENSION [None]
  - SYNCOPE [None]
